FAERS Safety Report 9248452 (Version 1)
Quarter: 2013Q2

REPORT INFORMATION
  Report Type: Spontaneous
  Country: GB (occurrence: GB)
  Receive Date: 20130423
  Receipt Date: 20130423
  Transmission Date: 20140414
  Serious: Yes (Other)
  Sender: FDA-Public Use
  Company Number: GB-BANPHARM-20131170

PATIENT
  Age: 16 Year
  Sex: 0

DRUGS (2)
  1. IBUPROFEN UNKNOWN PRODUCT [Suspect]
     Indication: PAIN
     Dosage: 400 MG,
     Route: 048
     Dates: start: 20070915, end: 20070923
  2. PARACETAMOL [Concomitant]
     Indication: PAIN
     Dosage: 1000 MG,
     Route: 048
     Dates: start: 20070915

REACTIONS (1)
  - Pancreatitis [Recovered/Resolved]
